FAERS Safety Report 5566721-2 (Version None)
Quarter: 2007Q4

REPORT INFORMATION
  Report Type: 
  Country: None (occurrence: None)
  Receive Date: 20071218
  Receipt Date: 20071218
  Transmission Date: 20080405
  Serious: Yes (Other)
  Sender: FDA-Public Use
  Company Number: None

PATIENT
  Sex: Female

DRUGS (1)
  1. REBIF [Suspect]
     Dosage: INJECT  44MCG  3 TIMES A WEEK   SQ
     Route: 058

REACTIONS (1)
  - HEPATIC ENZYME INCREASED [None]
